FAERS Safety Report 6833041-5 (Version None)
Quarter: 2010Q3

REPORT INFORMATION
  Report Type: 
  Country: None (occurrence: None)
  Receive Date: 20100712
  Receipt Date: 20070318
  Transmission Date: 20110219
  Serious: No
  Sender: FDA-Public Use
  Company Number: US-PFIZER INC-2007023051

PATIENT
  Sex: Male
  Weight: 109.77 kg

DRUGS (9)
  1. CHANTIX [Suspect]
     Indication: SMOKING CESSATION THERAPY
     Dates: start: 20070304
  2. THEOPHYLLINE [Concomitant]
     Indication: DYSPNOEA
     Dates: start: 19950101
  3. PREVACID [Concomitant]
     Indication: GASTROOESOPHAGEAL REFLUX DISEASE
     Dates: start: 19950101
  4. LIPITOR [Concomitant]
     Indication: BLOOD CHOLESTEROL INCREASED
     Dates: start: 19950101
  5. ATIVAN [Concomitant]
     Indication: ANXIETY
     Dates: start: 20061201
  6. ATIVAN [Concomitant]
     Indication: SLEEP DISORDER
  7. TOPROL-XL [Concomitant]
     Indication: CARDIAC DISORDER
     Dates: start: 19950101
  8. TRICOR [Concomitant]
     Dates: start: 19950101
  9. AMBIEN [Concomitant]
     Indication: SLEEP DISORDER
     Dates: start: 20060101

REACTIONS (2)
  - INSOMNIA [None]
  - NAUSEA [None]
